FAERS Safety Report 9642837 (Version 2)
Quarter: 2013Q4

REPORT INFORMATION
  Report Type: Report from Study
  Country: BR (occurrence: BR)
  Receive Date: 20131024
  Receipt Date: 20131223
  Transmission Date: 20140711
  Serious: Yes (Other)
  Sender: FDA-Public Use
  Company Number: PHHY2013BR114734

PATIENT
  Sex: Female
  Weight: 54 kg

DRUGS (5)
  1. SANDOSTATIN LAR [Suspect]
     Indication: ACROMEGALY
     Dosage: 20 MG, EVERY 28 DAYS
     Dates: start: 20081127, end: 20091029
  2. SANDOSTATIN LAR [Suspect]
     Dosage: 30 MG, EVERY 28 DAYS
     Dates: start: 20091126
  3. SANDOSTATIN LAR [Suspect]
     Dosage: 30 MG, EVERY 28 DAYS
     Dates: start: 20130814
  4. BROMOCRIPTINE [Concomitant]
     Indication: BLOOD PROLACTIN ABNORMAL
     Dosage: UNK UKN, UNK
  5. DOSTINEX [Concomitant]
     Dosage: UNK UKN, UNK

REACTIONS (8)
  - Extravasation [Not Recovered/Not Resolved]
  - Nasal obstruction [Not Recovered/Not Resolved]
  - Rhinitis [Not Recovered/Not Resolved]
  - Dyspnoea [Not Recovered/Not Resolved]
  - Nasal discomfort [Not Recovered/Not Resolved]
  - Inguinal hernia [Unknown]
  - Nodule [Not Recovered/Not Resolved]
  - Therapeutic response decreased [Unknown]
